FAERS Safety Report 8325637-9 (Version None)
Quarter: 2012Q2

REPORT INFORMATION
  Report Type: 
  Country: None (occurrence: None)
  Receive Date: 20120501
  Receipt Date: 20120423
  Transmission Date: 20120825
  Serious: Yes (Other)
  Sender: FDA-Public Use
  Company Number: US-ASTRAZENECA-2012SE26387

PATIENT
  Sex: Male

DRUGS (8)
  1. SIMVASTATIN [Concomitant]
     Indication: BLOOD CHOLESTEROL ABNORMAL
  2. PREVACID [Concomitant]
  3. LISINOPRIL [Suspect]
     Route: 048
  4. PLAVIX [Concomitant]
     Indication: CARDIAC DISORDER
  5. NEXIUM [Suspect]
     Indication: BARRETT'S OESOPHAGUS
     Route: 048
  6. LEVOTHYROXINE SODIUM [Concomitant]
     Indication: THYROID DISORDER
  7. AMLODIPINE [Concomitant]
     Indication: BLOOD PRESSURE ABNORMAL
  8. NEXIUM [Suspect]
     Route: 048

REACTIONS (7)
  - INTENTIONAL DRUG MISUSE [None]
  - MYOCARDIAL INFARCTION [None]
  - CARDIAC DISORDER [None]
  - OFF LABEL USE [None]
  - GASTROOESOPHAGEAL REFLUX DISEASE [None]
  - DRUG DISPENSING ERROR [None]
  - DYSPEPSIA [None]
